FAERS Safety Report 13106236 (Version 2)
Quarter: 2017Q1

REPORT INFORMATION
  Report Type: Spontaneous
  Country: IT (occurrence: IT)
  Receive Date: 20170111
  Receipt Date: 20170123
  Transmission Date: 20170428
  Serious: Yes (Other)
  Sender: FDA-Public Use
  Company Number: IT-MYLANLABS-2017M1000553

PATIENT

DRUGS (15)
  1. SALBUTAMOL [Suspect]
     Active Substance: ALBUTEROL
     Dosage: 5 UG/KG TOTAL
     Route: 042
  2. KETAMINE [Suspect]
     Active Substance: KETAMINE
     Indication: SEDATION
  3. CHLORPHENIRAMINE MALEATE. [Suspect]
     Active Substance: CHLORPHENIRAMINE MALEATE
     Dosage: 10 MG TOTAL
     Route: 042
  4. ATRACURIUM [Suspect]
     Active Substance: ATRACURIUM
     Indication: ANAESTHESIA
     Dosage: 40 MG TOTAL
  5. RANITIDINE. [Suspect]
     Active Substance: RANITIDINE
     Indication: PRODUCT USED FOR UNKNOWN INDICATION
     Dosage: 50 MG TOTAL
     Route: 042
  6. SALBUTAMOL [Suspect]
     Active Substance: ALBUTEROL
     Indication: PRODUCT USED FOR UNKNOWN INDICATION
     Dosage: 400 UG TOTAL
     Route: 055
  7. SALBUTAMOL [Suspect]
     Active Substance: ALBUTEROL
     Dosage: UNK
     Route: 007
  8. SALBUTAMOL [Suspect]
     Active Substance: ALBUTEROL
     Dosage: UNK
     Route: 042
  9. SEVOFLURANE. [Concomitant]
     Active Substance: SEVOFLURANE
     Indication: PRODUCT USED FOR UNKNOWN INDICATION
  10. EPINEPHRINE. [Suspect]
     Active Substance: EPINEPHRINE
     Indication: PRODUCT USED FOR UNKNOWN INDICATION
  11. REMIFENTANIL HYDROCHLORIDE [Concomitant]
     Active Substance: REMIFENTANIL HYDROCHLORIDE
     Indication: PRODUCT USED FOR UNKNOWN INDICATION
  12. DEXAMETHASONE. [Suspect]
     Active Substance: DEXAMETHASONE
     Indication: PRODUCT USED FOR UNKNOWN INDICATION
     Dosage: 4 MG TOTAL
     Route: 042
  13. PROPOFOL. [Concomitant]
     Active Substance: PROPOFOL
     Indication: PRODUCT USED FOR UNKNOWN INDICATION
  14. MAGNESIUM SULFATE. [Suspect]
     Active Substance: MAGNESIUM SULFATE
     Indication: PRODUCT USED FOR UNKNOWN INDICATION
     Route: 042
  15. METHYLPREDNISOLONE. [Suspect]
     Active Substance: METHYLPREDNISOLONE
     Indication: PRODUCT USED FOR UNKNOWN INDICATION
     Dosage: 40 MG TOTAL
     Route: 042

REACTIONS (9)
  - Acidosis [Recovered/Resolved]
  - Bronchospasm [Recovered/Resolved]
  - Anaphylactic reaction [Recovered/Resolved]
  - Hypercapnia [Recovered/Resolved]
  - Respiratory failure [Recovered/Resolved]
  - Hypoventilation [Recovered/Resolved]
  - Treatment failure [Unknown]
  - Blood pH decreased [Recovered/Resolved]
  - Dermatitis allergic [Unknown]
